FAERS Safety Report 20800802 (Version 2)
Quarter: 2022Q2

REPORT INFORMATION
  Report Type: Spontaneous
  Country: US (occurrence: US)
  Receive Date: 20220509
  Receipt Date: 20220517
  Transmission Date: 20220721
  Serious: Yes (Other)
  Sender: FDA-Public Use
  Company Number: US-MLMSERVICE-20220426-3521650-1

PATIENT
  Age: 57 Year
  Sex: Male

DRUGS (5)
  1. OXALIPLATIN [Suspect]
     Active Substance: OXALIPLATIN
     Indication: Rectal cancer stage III
     Dosage: 85 MG/M2 FOR FIRST 3 CYCLES
     Route: 062
  2. OXALIPLATIN [Suspect]
     Active Substance: OXALIPLATIN
     Dosage: OXALIPLATIN DOSE WAS REDUCED FROM 85 MG/M2 TO 75 MG/M2 FOR CYCLE 4
     Route: 062
  3. FLUOROURACIL [Suspect]
     Active Substance: FLUOROURACIL
     Indication: Rectal cancer stage III
     Dosage: UNK
     Route: 062
  4. LEUCOVORIN [Concomitant]
     Active Substance: LEUCOVORIN
     Indication: Rectal cancer stage III
     Dosage: UNK, PLANNED FOR 8 CYCLES
     Route: 062
  5. CAPECITABINE [Concomitant]
     Active Substance: CAPECITABINE
     Indication: Rectal cancer stage III
     Dosage: 825 MG/M2, BID

REACTIONS (16)
  - Peripheral sensorimotor neuropathy [Recovering/Resolving]
  - Lumbar radiculopathy [Recovering/Resolving]
  - Fall [Recovering/Resolving]
  - Oedema peripheral [Recovering/Resolving]
  - Bone pain [Recovering/Resolving]
  - Hypoaesthesia [Recovering/Resolving]
  - Gait disturbance [Recovering/Resolving]
  - Abdominal pain lower [Recovering/Resolving]
  - Pelvic pain [Recovering/Resolving]
  - Axonal and demyelinating polyneuropathy [Recovering/Resolving]
  - Deep vein thrombosis [Unknown]
  - Myositis [Recovering/Resolving]
  - Myopathy [Recovering/Resolving]
  - Mobility decreased [Recovering/Resolving]
  - Muscular weakness [Recovering/Resolving]
  - Muscle oedema [Recovering/Resolving]
